FAERS Safety Report 5698064-0 (Version None)
Quarter: 2008Q2

REPORT INFORMATION
  Report Type: 
  Country: None (occurrence: None)
  Receive Date: 20080404
  Receipt Date: 20080404
  Transmission Date: 20081010
  Serious: Yes (Death)
  Sender: FDA-Public Use
  Company Number: None

PATIENT
  Age: 54 Year
  Sex: Male
  Weight: 81.6475 kg

DRUGS (1)
  1. FENTANYL-100 [Suspect]
     Indication: PAIN
     Dosage: 100MCG  EVERY 72 HOURS

REACTIONS (2)
  - OVERDOSE [None]
  - PHARMACEUTICAL PRODUCT COMPLAINT [None]
